FAERS Safety Report 9338951 (Version 1)
Quarter: 2013Q2

REPORT INFORMATION
  Report Type: Spontaneous
  Country: FR (occurrence: FR)
  Receive Date: 20130610
  Receipt Date: 20130610
  Transmission Date: 20140414
  Serious: Yes (Disabling)
  Sender: FDA-Public Use
  Company Number: PHHY2013FR041610

PATIENT
  Age: 18 Year
  Sex: Female

DRUGS (3)
  1. PAROXETINE [Suspect]
     Dosage: 20 MG, DAILY
  2. CLOMIPRAMINE [Suspect]
     Dosage: 25 MG, UNK
  3. ST. JOHN^S WORT [Suspect]

REACTIONS (2)
  - Muscle contracture [Recovered/Resolved]
  - Yawning [Recovered/Resolved]
